FAERS Safety Report 10597400 (Version 2)
Quarter: 2014Q4

REPORT INFORMATION
  Report Type: Report from Study
  Country: US (occurrence: US)
  Receive Date: 20141121
  Receipt Date: 20141121
  Transmission Date: 20150529
  Serious: Yes (Other)
  Sender: FDA-Public Use
  Company Number: PHEH2014US021011

PATIENT
  Sex: Male

DRUGS (3)
  1. MYFORTIC [Suspect]
     Active Substance: MYCOPHENOLATE SODIUM
     Indication: COMPLICATIONS OF TRANSPLANTED LIVER
  2. MYFORTIC [Suspect]
     Active Substance: MYCOPHENOLATE SODIUM
     Indication: COMPLICATIONS OF TRANSPLANTED KIDNEY
  3. MYFORTIC [Suspect]
     Active Substance: MYCOPHENOLATE SODIUM
     Indication: RENAL AND LIVER TRANSPLANT
     Dosage: 180 MG, BID (TWICE A DAY)
     Route: 048
     Dates: start: 200711

REACTIONS (1)
  - Osteoarthritis [Unknown]
